FAERS Safety Report 24049737 (Version 1)
Quarter: 2024Q3

REPORT INFORMATION
  Report Type: Report from Study
  Country: DE (occurrence: DE)
  Receive Date: 20240704
  Receipt Date: 20240704
  Transmission Date: 20241016
  Serious: Yes (Hospitalization)
  Sender: RANBAXY
  Company Number: DE-SUN PHARMACEUTICAL INDUSTRIES LTD-2024RR-454001

PATIENT
  Age: 79 Year
  Sex: Female
  Weight: 103 kg

DRUGS (1)
  1. TILDRAKIZUMAB [Suspect]
     Active Substance: TILDRAKIZUMAB
     Indication: Psoriasis
     Dosage: 100 MILLIGRAM, DAILY
     Route: 058
     Dates: start: 20200622, end: 20210419

REACTIONS (1)
  - Developmental hip dysplasia [Recovered/Resolved]

NARRATIVE: CASE EVENT DATE: 20210301
